FAERS Safety Report 21416250 (Version 1)
Quarter: 2022Q4

REPORT INFORMATION
  Report Type: Spontaneous
  Country: US (occurrence: US)
  Receive Date: 20221006
  Receipt Date: 20221006
  Transmission Date: 20230112
  Serious: No
  Sender: FDA-Public Use
  Company Number: US-ALLERGAN-2207405US

PATIENT
  Sex: Male

DRUGS (1)
  1. VRAYLAR [Suspect]
     Active Substance: CARIPRAZINE
     Indication: Bipolar I disorder
     Dosage: 3 MG, QD
     Dates: start: 2019

REACTIONS (2)
  - Feeling abnormal [Not Recovered/Not Resolved]
  - Hypersomnia [Not Recovered/Not Resolved]
